FAERS Safety Report 17956747 (Version 41)
Quarter: 2025Q3

REPORT INFORMATION
  Report Type: Report from Study
  Country: US (occurrence: US)
  Receive Date: 20200629
  Receipt Date: 20250930
  Transmission Date: 20251021
  Serious: Yes (Other)
  Sender: TAKEDA
  Company Number: US-SHIRE-US202020949

PATIENT
  Age: 39 Year
  Sex: Female
  Weight: 66 kg

DRUGS (65)
  1. HUMAN IMMUNOGLOBULIN G [Suspect]
     Active Substance: HUMAN IMMUNOGLOBULIN G
     Indication: Immunodeficiency common variable
     Dosage: 12 GRAM, 1/WEEK
     Dates: start: 20171214
  2. HUMAN IMMUNOGLOBULIN G [Suspect]
     Active Substance: HUMAN IMMUNOGLOBULIN G
     Dosage: 12 GRAM, 1/WEEK
     Dates: start: 20210111
  3. HUMAN IMMUNOGLOBULIN G [Suspect]
     Active Substance: HUMAN IMMUNOGLOBULIN G
     Dosage: 12 GRAM, 1/WEEK
  4. HUMAN IMMUNOGLOBULIN G [Suspect]
     Active Substance: HUMAN IMMUNOGLOBULIN G
  5. ACETAMINOPHEN [Concomitant]
     Active Substance: ACETAMINOPHEN
  6. NASALCROM [Concomitant]
     Active Substance: CROMOLYN SODIUM
  7. FAMOTIDINE [Concomitant]
     Active Substance: FAMOTIDINE
  8. KETOCONAZOLE [Concomitant]
     Active Substance: KETOCONAZOLE
  9. COLACE [Concomitant]
     Active Substance: DOCUSATE SODIUM
  10. IBUPROFEN [Concomitant]
     Active Substance: IBUPROFEN
  11. VALACYCLOVIR [Concomitant]
     Active Substance: VALACYCLOVIR HYDROCHLORIDE
  12. SINGULAIR [Concomitant]
     Active Substance: MONTELUKAST SODIUM
  13. TRILEPTAL [Concomitant]
     Active Substance: OXCARBAZEPINE
  14. AZELASTINE HYDROCHLORIDE [Concomitant]
     Active Substance: AZELASTINE HYDROCHLORIDE
  15. KEPPRA [Concomitant]
     Active Substance: LEVETIRACETAM
  16. BANOPHEN [Concomitant]
     Active Substance: DIPHENHYDRAMINE HYDROCHLORIDE
  17. BEBTELOVIMAB [Concomitant]
     Active Substance: BEBTELOVIMAB
  18. LEVOTHYROXINE SODIUM [Concomitant]
     Active Substance: LEVOTHYROXINE SODIUM
  19. EPIPEN [Concomitant]
     Active Substance: EPINEPHRINE
  20. PULMICORT TURBUHALER [Concomitant]
     Active Substance: BUDESONIDE
  21. LIDOCAINE [Concomitant]
     Active Substance: LIDOCAINE
  22. PIPER METHYSTICUM ROOT [Concomitant]
     Active Substance: PIPER METHYSTICUM ROOT
  23. FLUCONAZOLE [Concomitant]
     Active Substance: FLUCONAZOLE
     Indication: Product used for unknown indication
  24. TESSALON [Concomitant]
     Active Substance: BENZONATATE
  25. IPRATROPIUM BROMIDE [Concomitant]
     Active Substance: IPRATROPIUM BROMIDE
  26. DANTROLENE SODIUM [Concomitant]
     Active Substance: DANTROLENE SODIUM
  27. ORPHENADRINE [Concomitant]
     Active Substance: ORPHENADRINE
  28. DIPHENHYDRAMINE HYDROCHLORIDE [Concomitant]
     Active Substance: DIPHENHYDRAMINE HYDROCHLORIDE
  29. HYDROXYZINE HYDROCHLORIDE [Concomitant]
     Active Substance: HYDROXYZINE HYDROCHLORIDE
  30. PRUDOXIN [Concomitant]
     Active Substance: DOXEPIN HYDROCHLORIDE
  31. PATADAY [Concomitant]
     Active Substance: OLOPATADINE HYDROCHLORIDE
  32. ATROVENT HFA [Concomitant]
     Active Substance: IPRATROPIUM BROMIDE
  33. AZITHROMYCIN [Concomitant]
     Active Substance: AZITHROMYCIN
  34. ASPIRIN [Concomitant]
     Active Substance: ASPIRIN
  35. EPINEPHRINE [Concomitant]
     Active Substance: EPINEPHRINE
  36. LIDOCAINE\PRILOCAINE [Concomitant]
     Active Substance: LIDOCAINE\PRILOCAINE
  37. GABAPENTIN [Concomitant]
     Active Substance: GABAPENTIN
  38. KLONOPIN [Concomitant]
     Active Substance: CLONAZEPAM
  39. LEVALBUTEROL HYDROCHLORIDE [Concomitant]
     Active Substance: LEVALBUTEROL HYDROCHLORIDE
  40. Vsl [Concomitant]
  41. Lmx [Concomitant]
  42. DIFLUCAN [Concomitant]
     Active Substance: FLUCONAZOLE
  43. DANTROLENE [Concomitant]
     Active Substance: DANTROLENE
  44. CEFDINIR [Concomitant]
     Active Substance: CEFDINIR
  45. PANTOPRAZOLE [Concomitant]
     Active Substance: PANTOPRAZOLE
  46. ZOLOFT [Concomitant]
     Active Substance: SERTRALINE HYDROCHLORIDE
  47. PROPRANOLOL [Concomitant]
     Active Substance: PROPRANOLOL HYDROCHLORIDE
  48. ZYRTEC [Concomitant]
     Active Substance: CETIRIZINE HYDROCHLORIDE
  49. FLUDROCORTISONE ACETATE [Concomitant]
     Active Substance: FLUDROCORTISONE ACETATE
  50. RANITIDINE [Concomitant]
     Active Substance: RANITIDINE
  51. LEVOXYL [Concomitant]
     Active Substance: LEVOTHYROXINE SODIUM
  52. MIRTAZAPINE [Concomitant]
     Active Substance: MIRTAZAPINE
  53. XOLAIR [Concomitant]
     Active Substance: OMALIZUMAB
  54. L-GLUTAMINE [Concomitant]
     Active Substance: GLUTAMINE
  55. Berberine complex [Concomitant]
  56. VITAMIN D3 [Concomitant]
     Active Substance: CHOLECALCIFEROL
  57. BROMELAINS [Concomitant]
     Active Substance: BROMELAINS
  58. Papain V [Concomitant]
  59. Methyl b complex [Concomitant]
  60. Endozin [Concomitant]
  61. ZINC [Concomitant]
     Active Substance: ZINC
  62. ATROVENT HFA [Concomitant]
     Active Substance: IPRATROPIUM BROMIDE
  63. AMITRIPTYLINE HYDROCHLORIDE [Concomitant]
     Active Substance: AMITRIPTYLINE HYDROCHLORIDE
  64. MELATONIN [Concomitant]
     Active Substance: MELATONIN
  65. PRAZOSIN HYDROCHLORIDE [Concomitant]
     Active Substance: PRAZOSIN HYDROCHLORIDE

REACTIONS (45)
  - Cytomegalovirus infection [Unknown]
  - Pneumonia mycoplasmal [Unknown]
  - Arthritis infective [Unknown]
  - Pneumonia [Unknown]
  - Bacterial vulvovaginitis [Unknown]
  - Viral upper respiratory tract infection [Recovered/Resolved]
  - Inappropriate schedule of product administration [Unknown]
  - Product dose omission issue [Unknown]
  - Infusion related reaction [Unknown]
  - Foot fracture [Unknown]
  - Epstein-Barr virus infection [Unknown]
  - Ehlers-Danlos syndrome [Unknown]
  - Bacterial infection [Unknown]
  - Stress [Unknown]
  - Laryngitis [Unknown]
  - Infectious mononucleosis [Unknown]
  - Fungal skin infection [Not Recovered/Not Resolved]
  - Nasopharyngitis [Unknown]
  - Viral infection [Unknown]
  - Food allergy [Unknown]
  - Urinary tract infection [Unknown]
  - Fungal infection [Unknown]
  - COVID-19 [Unknown]
  - Candida infection [Unknown]
  - Gastrointestinal infection [Unknown]
  - General physical health deterioration [Unknown]
  - Dental caries [Unknown]
  - Infusion site discharge [Unknown]
  - Infection [Unknown]
  - Bacterial vaginosis [Unknown]
  - Tooth infection [Unknown]
  - Insurance issue [Unknown]
  - Food allergy [Unknown]
  - Product use issue [Unknown]
  - Asthma [Unknown]
  - Infusion site haemorrhage [Unknown]
  - Infusion site mass [Unknown]
  - Influenza [Unknown]
  - Contusion [Unknown]
  - Phlebitis [Unknown]
  - Infusion site bruising [Unknown]
  - Infusion site erythema [Unknown]
  - Hypersensitivity [Unknown]
  - Infusion site pain [Unknown]
  - Fatigue [Unknown]

NARRATIVE: CASE EVENT DATE: 20210429
